FAERS Safety Report 15034281 (Version 3)
Quarter: 2018Q3

REPORT INFORMATION
  Report Type: Spontaneous
  Country: IL (occurrence: IL)
  Receive Date: 20180620
  Receipt Date: 20180823
  Transmission Date: 20181010
  Serious: Yes (Other)
  Sender: FDA-Public Use
  Company Number: IL-ABBVIE-18K-082-2391502-00

PATIENT
  Sex: Male

DRUGS (1)
  1. HUMIRA [Suspect]
     Active Substance: ADALIMUMAB
     Indication: PSORIATIC ARTHROPATHY
     Route: 058
     Dates: start: 201804

REACTIONS (6)
  - Lymphadenopathy [Unknown]
  - Infection [Unknown]
  - Sarcoidosis [Unknown]
  - Lymphoma [Unknown]
  - Cough [Not Recovered/Not Resolved]
  - Traumatic lung injury [Unknown]

NARRATIVE: CASE EVENT DATE: 2018
